FAERS Safety Report 23221455 (Version 1)
Quarter: 2023Q4

REPORT INFORMATION
  Report Type: Spontaneous
  Country: US (occurrence: US)
  Receive Date: 20231123
  Receipt Date: 20231123
  Transmission Date: 20240110
  Serious: No
  Sender: FDA-Public Use
  Company Number: US-STRIDES ARCOLAB LIMITED-2023SP010809

PATIENT
  Sex: Female
  Weight: 74.83 kg

DRUGS (1)
  1. PROPAFENONE [Suspect]
     Active Substance: PROPAFENONE
     Indication: Atrial fibrillation
     Dosage: 225 MILLIGRAM, BID, CAPSULES (TWICE A DAY)
     Route: 048

REACTIONS (1)
  - Expired product administered [Unknown]
